FAERS Safety Report 24219498 (Version 1)
Quarter: 2024Q3

REPORT INFORMATION
  Report Type: Spontaneous
  Country: US (occurrence: US)
  Receive Date: 20240816
  Receipt Date: 20240816
  Transmission Date: 20241016
  Serious: Yes (Other)
  Sender: HLS THERAPEUTICS
  Company Number: US-HLS-202400709

PATIENT
  Sex: Male

DRUGS (1)
  1. CLOZARIL [Suspect]
     Active Substance: CLOZAPINE
     Indication: Schizoaffective disorder
     Dosage: 100MG AM, 200MG HS
     Route: 065

REACTIONS (4)
  - Glycosylated haemoglobin increased [Unknown]
  - Off label use [Unknown]
  - Off label use [Unknown]
  - Psychotic symptom [Unknown]
